FAERS Safety Report 17535037 (Version 1)
Quarter: 2020Q1

REPORT INFORMATION
  Report Type: Spontaneous
  Country: IN (occurrence: IN)
  Receive Date: 20200312
  Receipt Date: 20200312
  Transmission Date: 20200409
  Serious: Yes (Other)
  Sender: FDA-Public Use
  Company Number: IN-BAUSCH-BL-2020-007039

PATIENT
  Age: 55 Year
  Sex: Female

DRUGS (2)
  1. 8-MOP [Suspect]
     Active Substance: METHOXSALEN
     Indication: PUVA
  2. 8-MOP [Suspect]
     Active Substance: METHOXSALEN
     Indication: VITILIGO
     Route: 048

REACTIONS (1)
  - Maculopathy [Unknown]
